FAERS Safety Report 4547020-4 (Version None)
Quarter: 2004Q4

REPORT INFORMATION
  Report Type: 
  Country: None (occurrence: None)
  Receive Date: 20041223
  Receipt Date: 20041018
  Transmission Date: 20050328
  Serious: No
  Sender: FDA-Public Use
  Company Number: US-JNJFOC-20041006147

PATIENT
  Age: 42 Year
  Sex: Female
  Weight: 63.5036 kg

DRUGS (4)
  1. ORTHO EVRA [Suspect]
     Indication: CONTRACEPTION
     Dosage: 1 DOSE(S), 6 IN 7 WEEK, TRANSDERMAL
     Route: 062
     Dates: start: 20040501
  2. EMBREL (ETANERCEPT) [Concomitant]
  3. CELEBREX [Concomitant]
  4. METHOTREXATE [Concomitant]

REACTIONS (1)
  - VAGINAL HAEMORRHAGE [None]
